FAERS Safety Report 5509659-9 (Version None)
Quarter: 2007Q4

REPORT INFORMATION
  Report Type: 
  Country: None (occurrence: None)
  Receive Date: 20071108
  Receipt Date: 20071026
  Transmission Date: 20080405
  Serious: Yes (Disabling, Other)
  Sender: FDA-Public Use
  Company Number: PHBS2007JP17943

PATIENT
  Sex: Female

DRUGS (2)
  1. RITALIN [Suspect]
  2. HALCION [Concomitant]

REACTIONS (5)
  - FLASHBACK [None]
  - HALLUCINATION [None]
  - HALLUCINATION, AUDITORY [None]
  - POST-TRAUMATIC STRESS DISORDER [None]
  - SYNCOPE [None]
